FAERS Safety Report 7119604-0 (Version None)
Quarter: 2010Q4

REPORT INFORMATION
  Report Type: 
  Country: None (occurrence: None)
  Receive Date: 20101123
  Receipt Date: 20101116
  Transmission Date: 20110411
  Serious: Yes (Other)
  Sender: FDA-Public Use
  Company Number: US-ABBOTT-10P-163-0685576-00

PATIENT
  Sex: Female
  Weight: 99.88 kg

DRUGS (4)
  1. MERIDIA [Suspect]
     Indication: INCREASED APPETITE
     Route: 048
     Dates: start: 20070101, end: 20070101
  2. MERIDIA [Suspect]
     Route: 048
     Dates: start: 20080101, end: 20080101
  3. MERIDIA [Suspect]
     Route: 048
     Dates: start: 20090101, end: 20090101
  4. ESTROGEN SUPPLEMENT [Concomitant]
     Indication: OESTROGEN REPLACEMENT THERAPY

REACTIONS (5)
  - CHEST DISCOMFORT [None]
  - FEELING ABNORMAL [None]
  - HEADACHE [None]
  - HYPOAESTHESIA [None]
  - HYPOAESTHESIA FACIAL [None]
